FAERS Safety Report 7987513-0 (Version None)
Quarter: 2011Q4

REPORT INFORMATION
  Report Type: 
  Country: None (occurrence: None)
  Receive Date: 20111216
  Receipt Date: 20111208
  Transmission Date: 20120403
  Serious: Yes (Hospitalization, Other)
  Sender: FDA-Public Use
  Company Number: PHEH2011US010892

PATIENT
  Sex: Female

DRUGS (1)
  1. GILENYA [Suspect]
     Indication: MULTIPLE SCLEROSIS
     Dosage: 0.5 MG, QD
     Route: 048
     Dates: start: 20110201, end: 20111127

REACTIONS (18)
  - HYPOKINESIA [None]
  - STRESS [None]
  - PAIN [None]
  - MOOD ALTERED [None]
  - NEPHROLITHIASIS [None]
  - URINARY TRACT INFECTION [None]
  - OROPHARYNGEAL PAIN [None]
  - NAUSEA [None]
  - DEPRESSED MOOD [None]
  - DYSPHAGIA [None]
  - BLOOD URINE PRESENT [None]
  - STOMATITIS [None]
  - GLOSSODYNIA [None]
  - DECREASED APPETITE [None]
  - HEADACHE [None]
  - VISUAL IMPAIRMENT [None]
  - FLANK PAIN [None]
  - FATIGUE [None]
